FAERS Safety Report 24914616 (Version 1)
Quarter: 2025Q1

REPORT INFORMATION
  Report Type: Spontaneous
  Country: US (occurrence: US)
  Receive Date: 20250203
  Receipt Date: 20250203
  Transmission Date: 20250408
  Serious: No
  Sender: ROCHE
  Company Number: US-ROCHE-10000195430

PATIENT
  Age: 26 Year
  Sex: Female

DRUGS (1)
  1. OCREVUS [Suspect]
     Active Substance: OCRELIZUMAB
     Indication: Multiple sclerosis
     Dosage: SECOND DOSE OF THE 300 MG OF OCREVUS ON 04-DEC-2024?FIRST FULL DOSE (600 MG) OF OCREVUS IN -JUN-2025
     Route: 040
     Dates: start: 20241120

REACTIONS (5)
  - Pharyngeal swelling [Recovered/Resolved]
  - Upper respiratory tract infection [Recovered/Resolved]
  - Urinary tract infection [Recovered/Resolved]
  - Ear infection [Recovered/Resolved]
  - Cellulitis [Recovered/Resolved]

NARRATIVE: CASE EVENT DATE: 20241120
